FAERS Safety Report 7827808-4 (Version None)
Quarter: 2011Q4

REPORT INFORMATION
  Report Type: 
  Country: None (occurrence: None)
  Receive Date: 20111020
  Receipt Date: 20111010
  Transmission Date: 20120403
  Serious: Yes (Hospitalization)
  Sender: FDA-Public Use
  Company Number: US-BAYER-2011-098555

PATIENT
  Age: 80 Year
  Sex: Female

DRUGS (14)
  1. LISINOPRIL [Suspect]
  2. IMDUR [Concomitant]
     Dosage: UNK
     Dates: start: 20100927
  3. SAXAGLIPTIN [Suspect]
     Indication: TYPE 2 DIABETES MELLITUS
     Dosage: UNK
     Route: 048
     Dates: start: 20100809
  4. ZOFRAN [Concomitant]
     Dosage: UNK
     Dates: start: 20100927, end: 20101001
  5. LANTUS [Suspect]
     Dosage: UNK
     Dates: start: 20100927, end: 20101001
  6. NOVOLOG [Suspect]
     Dosage: UNK
     Dates: start: 20100927, end: 20101001
  7. LASIX [Concomitant]
     Dosage: UNK
     Dates: start: 20100927, end: 20101001
  8. METHYLPREDNISOLONE [Concomitant]
     Dosage: UNK
     Dates: start: 20100927, end: 20101001
  9. MIDAZOLAM HCL [Concomitant]
     Dosage: UNK
     Dates: start: 20101009, end: 20101020
  10. AMARYL [Suspect]
     Indication: TYPE 2 DIABETES MELLITUS
     Dosage: 2 MG, QD
     Route: 048
  11. IPRATROPIUM BROMIDE [Concomitant]
     Dosage: UNK
     Dates: start: 20100927, end: 20101001
  12. PANTOPRAZOLE [Concomitant]
     Dosage: UNK
     Dates: start: 20101009, end: 20101020
  13. FENTANYL [Concomitant]
     Dosage: UNK
     Dates: start: 20101009, end: 20101020
  14. ACETYLSALICYLIC ACID SRT [Suspect]
     Dosage: DAILY DOSE 100 MG

REACTIONS (5)
  - CARDIAC FAILURE CONGESTIVE [None]
  - RENAL FAILURE ACUTE [None]
  - DUODENAL ULCER HAEMORRHAGE [None]
  - PRESYNCOPE [None]
  - CONFUSIONAL STATE [None]
